FAERS Safety Report 13472953 (Version 2)
Quarter: 2017Q3

REPORT INFORMATION
  Report Type: Report from Study
  Country: US (occurrence: US)
  Receive Date: 20170424
  Receipt Date: 20170815
  Transmission Date: 20171127
  Serious: No
  Sender: FDA-Public Use
  Company Number: PHEH2017US011769

PATIENT
  Age: 67 Year
  Sex: Male

DRUGS (2)
  1. ENTRESTO [Suspect]
     Active Substance: SACUBITRIL\VALSARTAN
     Dosage: 1 DF (24/26 MG), UNK
     Route: 048
  2. ENTRESTO [Suspect]
     Active Substance: SACUBITRIL\VALSARTAN
     Indication: CARDIAC FAILURE
     Dosage: 1 DF (49/51 MG), BID
     Route: 048
     Dates: start: 20170404, end: 20170418

REACTIONS (2)
  - Hypotension [Unknown]
  - Dizziness postural [Unknown]

NARRATIVE: CASE EVENT DATE: 20170418
